FAERS Safety Report 18630905 (Version 1)
Quarter: 2020Q4

REPORT INFORMATION
  Report Type: Spontaneous
  Country: US (occurrence: US)
  Receive Date: 20201217
  Receipt Date: 20201217
  Transmission Date: 20210114
  Serious: Yes (Other)
  Sender: FDA-Public Use
  Company Number: US-ELI_LILLY_AND_COMPANY-US202012006149

PATIENT

DRUGS (1)
  1. FORTEO [Suspect]
     Active Substance: TERIPARATIDE
     Indication: PRODUCT USED FOR UNKNOWN INDICATION
     Dosage: UNK UNK, UNKNOWN
     Route: 065

REACTIONS (22)
  - Headache [Unknown]
  - Allergic reaction to excipient [Unknown]
  - Leukopenia [Unknown]
  - Hepatic neoplasm [Unknown]
  - Neutropenia [Unknown]
  - Osteoporosis [Unknown]
  - Dysphonia [Unknown]
  - Feeling abnormal [Unknown]
  - Fatigue [Unknown]
  - Gait disturbance [Unknown]
  - Neck injury [Unknown]
  - Nausea [Recovering/Resolving]
  - Autonomic nervous system imbalance [Unknown]
  - Arrhythmia [Unknown]
  - Pancreatic carcinoma [Unknown]
  - Dizziness [Unknown]
  - Body temperature abnormal [Unknown]
  - Hot flush [Unknown]
  - Road traffic accident [Unknown]
  - Brain injury [Unknown]
  - Dyspnoea [Not Recovered/Not Resolved]
  - Anaemia [Unknown]

NARRATIVE: CASE EVENT DATE: 20201209
